FAERS Safety Report 4994773-7 (Version None)
Quarter: 2006Q1

REPORT INFORMATION
  Report Type: 
  Country: None (occurrence: None)
  Receive Date: 20060313
  Receipt Date: 20050519
  Transmission Date: 20060701
  Serious: Yes (Other)
  Sender: FDA-Public Use
  Company Number: PHEH2005US05735

PATIENT
  Age: 34 Year
  Sex: Male

DRUGS (4)
  1. TRILEPTAL [Suspect]
     Indication: CONVULSION
     Dates: start: 20030101
  2. CLOZARIL [Concomitant]
  3. TRAZODONE HCL [Concomitant]
  4. LITHIUM (LITHIUM) [Concomitant]

REACTIONS (1)
  - CONVULSION [None]
